FAERS Safety Report 15357532 (Version 1)
Quarter: 2018Q3

REPORT INFORMATION
  Report Type: Report from Study
  Country: US (occurrence: US)
  Receive Date: 20180906
  Receipt Date: 20180906
  Transmission Date: 20181010
  Serious: Yes (Hospitalization, Other)
  Sender: FDA-Public Use
  Company Number: US-GILEAD-2018-0361123

PATIENT
  Age: 63 Year
  Sex: Female

DRUGS (1)
  1. AMBRISENTAN [Suspect]
     Active Substance: AMBRISENTAN
     Indication: PULMONARY ARTERIAL HYPERTENSION
     Dosage: 5 MG, QD
     Route: 048
     Dates: start: 20180501

REACTIONS (6)
  - Ascites [Unknown]
  - Diverticulum [Unknown]
  - Urine output decreased [Unknown]
  - Vomiting [Unknown]
  - Escherichia urinary tract infection [Unknown]
  - Abdominal pain upper [Unknown]

NARRATIVE: CASE EVENT DATE: 20180815
